FAERS Safety Report 6871872-6 (Version None)
Quarter: 2010Q3

REPORT INFORMATION
  Report Type: 
  Country: None (occurrence: None)
  Receive Date: 20100723
  Receipt Date: 20100714
  Transmission Date: 20110219
  Serious: Yes (Other)
  Sender: FDA-Public Use
  Company Number: BR-PFIZER INC-2010088688

PATIENT
  Age: 36 Year
  Sex: Female

DRUGS (3)
  1. LIPITOR [Suspect]
     Indication: BLOOD CHOLESTEROL
     Dosage: 20 MG, 1X/DAY
     Route: 064
     Dates: start: 20090904, end: 20091005
  2. SERTRALINE [Concomitant]
     Dosage: UNK
     Route: 064
     Dates: start: 20090501
  3. ALPRAZOLAM [Concomitant]
     Dosage: UNK
     Route: 064
     Dates: start: 20081001, end: 20091001

REACTIONS (1)
  - ABORTION SPONTANEOUS [None]
